FAERS Safety Report 8984527 (Version 3)
Quarter: 2013Q1

REPORT INFORMATION
  Report Type: Spontaneous
  Country: GB (occurrence: None)
  Receive Date: 20121214
  Receipt Date: 20130206
  Transmission Date: 20140127
  Serious: Yes (Other)
  Sender: FDA-Public Use
  Company Number: 2012AP004153

PATIENT
  Age: 38 Year
  Sex: Male

DRUGS (8)
  1. OMEPRAZOLE (OMEPRAZOLE) [Suspect]
     Indication: ABDOMINAL PAIN
  2. MINOCYCLINE HYDROCHLORIDE [Suspect]
     Indication: PRODUCT USED FOR UNKNOWN INDICATION
  3. DOXYCYCLINE [Suspect]
     Indication: URINARY TRACT INFECTION
     Dates: start: 201111
  4. QUETIAPINE [Suspect]
     Indication: ANXIETY
  5. CIPROFLOXACIN HYDROCHLORIDE (CIPROFLOXACIN HYDROCHLORIDE) [Suspect]
     Indication: PRODUCT USED FOR UNKNOWN INDICATION
     Dates: start: 201206
  6. NITROFURANTOIN [Suspect]
     Indication: PRODUCT USED FOR UNKNOWN INDICATION
  7. TRIMETHOPRIM (TRIMETHOPRIM) [Concomitant]
  8. LAXATIVES (LAXATIVES) [Concomitant]

REACTIONS (24)
  - Dehydration [None]
  - Skin depigmentation [None]
  - Malaise [None]
  - Gastrooesophageal reflux disease [None]
  - Hair colour changes [None]
  - Alopecia [None]
  - Headache [None]
  - Tooth injury [None]
  - Drug ineffective [None]
  - Mass [None]
  - Melanocytic naevus [None]
  - Melanocytic naevus [None]
  - Skin discolouration [None]
  - Abdominal discomfort [None]
  - Gastric ulcer [None]
  - Photosensitivity reaction [None]
  - Chromaturia [None]
  - Skin exfoliation [None]
  - Urinary tract infection [None]
  - Anxiety [None]
  - Bone pain [None]
  - Dental caries [None]
  - Protein total abnormal [None]
  - Tendonitis [None]
